FAERS Safety Report 21369999 (Version 1)
Quarter: 2022Q3

REPORT INFORMATION
  Report Type: Spontaneous
  Country: NL (occurrence: NL)
  Receive Date: 20220923
  Receipt Date: 20220923
  Transmission Date: 20221026
  Serious: Yes (Other)
  Sender: FDA-Public Use
  Company Number: NL-NOVARTISPH-NVSC2022NL212940

PATIENT
  Age: 77 Year
  Sex: Male

DRUGS (4)
  1. CIPROFLOXACIN [Interacting]
     Active Substance: CIPROFLOXACIN
     Indication: Product used for unknown indication
     Dosage: UNK
     Route: 065
  2. LEVOTHYROXINE [Interacting]
     Active Substance: LEVOTHYROXINE
     Indication: Hypothyroidism
     Dosage: 0.1 MG, QD
     Route: 048
     Dates: start: 1969
  3. LEVOTHYROXINE [Interacting]
     Active Substance: LEVOTHYROXINE
     Dosage: 0.1 MG, QD ((80 DAYS) BLISTER)
     Route: 048
     Dates: start: 20140311
  4. LEVOTHYROXINE [Interacting]
     Active Substance: LEVOTHYROXINE
     Dosage: UNK UNK, QD
     Route: 048

REACTIONS (4)
  - Drug interaction [Unknown]
  - Weight decreased [Unknown]
  - Blood thyroid stimulating hormone abnormal [Recovered/Resolved]
  - Blood thyroid stimulating hormone increased [Unknown]

NARRATIVE: CASE EVENT DATE: 20140711
